FAERS Safety Report 10332493 (Version 1)
Quarter: 2014Q3

REPORT INFORMATION
  Report Type: Spontaneous
  Country: US (occurrence: US)
  Receive Date: 20140722
  Receipt Date: 20140722
  Transmission Date: 20150326
  Serious: No
  Sender: FDA-Public Use
  Company Number: US-ASTRAZENECA-2013SE71708

PATIENT
  Age: 58 Year
  Sex: Female
  Weight: 71.2 kg

DRUGS (6)
  1. SUNCHOLER [Concomitant]
     Indication: ILL-DEFINED DISORDER
     Dosage: 5- 10 PILLS DAILY
     Route: 048
     Dates: start: 2003
  2. SEROQUEL XR [Suspect]
     Active Substance: QUETIAPINE FUMARATE
     Indication: SLEEP DISORDER
     Route: 048
     Dates: start: 20130923
  3. LISINOPRIL. [Suspect]
     Active Substance: LISINOPRIL
     Indication: HYPERTENSION
     Route: 048
     Dates: start: 2008
  4. PRAVASTATI [Concomitant]
     Indication: HYPERCHOLESTEROLAEMIA
     Route: 048
     Dates: start: 2009
  5. OMEPRAZOLE. [Suspect]
     Active Substance: OMEPRAZOLE
     Indication: GASTROOESOPHAGEAL REFLUX DISEASE
     Route: 048
     Dates: start: 2005
  6. ALPRAZALAM [Concomitant]
     Indication: ANXIETY
     Route: 048
     Dates: start: 2010

REACTIONS (3)
  - Insomnia [Unknown]
  - Off label use [Unknown]
  - Blood cholesterol increased [Unknown]

NARRATIVE: CASE EVENT DATE: 20130923
